FAERS Safety Report 10271804 (Version 1)
Quarter: 2014Q3

REPORT INFORMATION
  Report Type: Spontaneous
  Country: US (occurrence: US)
  Receive Date: 20140701
  Receipt Date: 20140701
  Transmission Date: 20150326
  Serious: No
  Sender: FDA-Public Use
  Company Number: US-009507513-1406USA002489

PATIENT
  Age: 79 Year
  Sex: Female

DRUGS (1)
  1. DULERA [Suspect]
     Active Substance: FORMOTEROL FUMARATE DIHYDRATE\MOMETASONE FUROATE
     Indication: ASTHMA
     Dosage: 2 PUFF, Q12H
     Route: 048

REACTIONS (7)
  - Palpitations [Recovering/Resolving]
  - Terminal insomnia [Recovering/Resolving]
  - Flushing [Recovering/Resolving]
  - Drug administration error [Recovering/Resolving]
  - Asthma [Recovering/Resolving]
  - Feeling abnormal [Recovered/Resolved]
  - Ear discomfort [Recovering/Resolving]

NARRATIVE: CASE EVENT DATE: 20140603
